FAERS Safety Report 6963907-7 (Version None)
Quarter: 2010Q3

REPORT INFORMATION
  Report Type: 
  Country: None (occurrence: None)
  Receive Date: 20100831
  Receipt Date: 20100817
  Transmission Date: 20110219
  Serious: Yes (Hospitalization)
  Sender: FDA-Public Use
  Company Number: CIP10001955

PATIENT
  Age: 38 Year
  Sex: Female

DRUGS (1)
  1. FURADANTIN [Suspect]
     Indication: URINARY TRACT INFECTION
     Dosage: 50 MG DAILY, ORAL
     Route: 048
     Dates: start: 20100804, end: 20100804

REACTIONS (2)
  - HYPOACUSIS [None]
  - PRURITUS GENERALISED [None]
